FAERS Safety Report 16053270 (Version 4)
Quarter: 2019Q2

REPORT INFORMATION
  Report Type: Report from Study
  Country: DE (occurrence: DE)
  Receive Date: 20190308
  Receipt Date: 20190607
  Transmission Date: 20190711
  Serious: Yes (Hospitalization)
  Sender: FDA-Public Use
  Company Number: DE-JNJFOC-20190225784

PATIENT
  Age: 75 Year
  Sex: Male
  Weight: 89 kg

DRUGS (10)
  1. ALLOPURINOL. [Concomitant]
     Active Substance: ALLOPURINOL
     Route: 048
     Dates: start: 20160701
  2. TAMSULOSIN [Concomitant]
     Active Substance: TAMSULOSIN
     Route: 048
     Dates: start: 20050701
  3. VITAMIN K2 [Concomitant]
     Active Substance: MENAQUINONE 6
     Route: 048
     Dates: start: 20080701
  4. BISOPROLOL [Concomitant]
     Active Substance: BISOPROLOL
     Route: 048
  5. METOPROLOL. [Concomitant]
     Active Substance: METOPROLOL
     Route: 048
     Dates: start: 20080701
  6. MAGNESIUM [Concomitant]
     Active Substance: MAGNESIUM
     Route: 048
     Dates: start: 20080701
  7. CANDESARTAN. [Concomitant]
     Active Substance: CANDESARTAN
     Dosage: 16/12.5
     Route: 048
     Dates: start: 20080701
  8. THYRONAJOD [Concomitant]
     Active Substance: LEVOTHYROXINE SODIUM\POTASSIUM IODIDE
     Route: 048
     Dates: start: 20030701
  9. IBRUTINIB [Suspect]
     Active Substance: IBRUTINIB
     Indication: CHRONIC LYMPHOCYTIC LEUKAEMIA
     Route: 048
     Dates: start: 20181022, end: 20190217
  10. GINKGO [Concomitant]
     Active Substance: GINKGO
     Route: 048
     Dates: start: 20080701

REACTIONS (1)
  - Posterior reversible encephalopathy syndrome [Recovered/Resolved]

NARRATIVE: CASE EVENT DATE: 20190218
